FAERS Safety Report 7955787-8 (Version None)
Quarter: 2011Q4

REPORT INFORMATION
  Report Type: 
  Country: None (occurrence: None)
  Receive Date: 20111205
  Receipt Date: 20111122
  Transmission Date: 20120403
  Serious: Yes (Hospitalization)
  Sender: FDA-Public Use
  Company Number: US-BIOGENIDEC-2009BI020662

PATIENT
  Age: 52 Year
  Sex: Female

DRUGS (1)
  1. TYSABRI [Suspect]
     Indication: MULTIPLE SCLEROSIS
     Route: 042
     Dates: start: 20080401

REACTIONS (9)
  - FACIAL PAIN [None]
  - ARTHRALGIA [None]
  - MENTAL IMPAIRMENT [None]
  - ARTIFICIAL CROWN PROCEDURE [None]
  - PNEUMONIA [None]
  - TRIGEMINAL NEURALGIA [None]
  - SLOW SPEECH [None]
  - MYALGIA [None]
  - BRUGADA SYNDROME [None]
